FAERS Safety Report 10284733 (Version 1)
Quarter: 2014Q3

REPORT INFORMATION
  Report Type: Spontaneous
  Country: US (occurrence: None)
  Receive Date: 20140703
  Receipt Date: 20140703
  Transmission Date: 20150326
  Serious: No
  Sender: FDA-Public Use
  Company Number: None

PATIENT
  Sex: Male

DRUGS (1)
  1. AFINITOR [Suspect]
     Active Substance: EVEROLIMUS
     Indication: NEOPLASM
     Route: 048
     Dates: start: 20130911

REACTIONS (5)
  - Memory impairment [None]
  - Drug dose omission [None]
  - Onychoclasis [None]
  - Pruritus [None]
  - Dry skin [None]
